FAERS Safety Report 24791082 (Version 1)
Quarter: 2024Q4

REPORT INFORMATION
  Report Type: Report from Study
  Country: US (occurrence: US)
  Receive Date: 20241230
  Receipt Date: 20241230
  Transmission Date: 20250114
  Serious: Yes (Other)
  Sender: ABBVIE
  Company Number: US-ABBVIE-6066442

PATIENT
  Age: 69 Year
  Sex: Female

DRUGS (1)
  1. RINVOQ [Suspect]
     Active Substance: UPADACITINIB
     Indication: Crohn^s disease
     Route: 048
     Dates: start: 20231027

REACTIONS (9)
  - Loss of consciousness [Unknown]
  - Fall [Unknown]
  - Nausea [Unknown]
  - Chest injury [Unknown]
  - Limb injury [Unknown]
  - Contusion [Unknown]
  - Musculoskeletal disorder [Unknown]
  - Arthritis [Unknown]
  - Blood glucose decreased [Unknown]

NARRATIVE: CASE EVENT DATE: 20241201
